FAERS Safety Report 9704454 (Version 2)
Quarter: 2015Q1

REPORT INFORMATION
  Report Type: Spontaneous
  Country: US (occurrence: US)
  Receive Date: 20131122
  Receipt Date: 20150106
  Transmission Date: 20150721
  Serious: Yes (Hospitalization)
  Sender: FDA-Public Use
  Company Number: US-BAYER-2013-141299

PATIENT
  Age: 25 Year
  Sex: Female
  Weight: 63.49 kg

DRUGS (1)
  1. MIRENA [Suspect]
     Active Substance: LEVONORGESTREL
     Indication: CONTRACEPTION
     Dosage: 20 MCG/24HR, CONT
     Route: 015
     Dates: start: 201007, end: 20130525

REACTIONS (5)
  - Infertility [None]
  - Abdominal pain [None]
  - Pain [None]
  - Ovarian cyst [None]
  - Injury [None]

NARRATIVE: CASE EVENT DATE: 20130524
